FAERS Safety Report 7914770-9 (Version None)
Quarter: 2011Q4

REPORT INFORMATION
  Report Type: 
  Country: None (occurrence: None)
  Receive Date: 20111115
  Receipt Date: 20111103
  Transmission Date: 20120403
  Serious: Yes (Other)
  Sender: FDA-Public Use
  Company Number: NL-SANOFI-AVENTIS-2011SA069509

PATIENT
  Age: 35 Year
  Sex: Female

DRUGS (2)
  1. ETANERCEPT [Suspect]
     Indication: RHEUMATOID ARTHRITIS
     Route: 030
     Dates: start: 20100502, end: 20110602
  2. ARAVA [Suspect]
     Route: 048
     Dates: start: 20091201, end: 20110602

REACTIONS (1)
  - ABORTION SPONTANEOUS [None]
